FAERS Safety Report 13355029 (Version 2)
Quarter: 2017Q2

REPORT INFORMATION
  Report Type: Spontaneous
  Country: US (occurrence: US)
  Receive Date: 20170321
  Receipt Date: 20170623
  Transmission Date: 20170830
  Serious: Yes (Hospitalization)
  Sender: FDA-Public Use
  Company Number: US-ACTELION-A-NJ2017-151360

PATIENT
  Age: 30 Year
  Sex: Female
  Weight: 60.77 kg

DRUGS (4)
  1. VELETRI [Suspect]
     Active Substance: EPOPROSTENOL
     Indication: PULMONARY HYPERTENSION
     Dosage: 60 NG/KG, PER MIN
     Route: 042
  2. ADEMPAS [Concomitant]
     Active Substance: RIOCIGUAT
  3. VELETRI [Suspect]
     Active Substance: EPOPROSTENOL
     Dosage: 70 NG/KG, PER MIN
     Route: 042
  4. LETAIRIS [Concomitant]
     Active Substance: AMBRISENTAN

REACTIONS (4)
  - Pulmonary hypertension [Unknown]
  - Disease complication [Unknown]
  - Loss of consciousness [Unknown]
  - Dyspnoea exertional [Unknown]
